FAERS Safety Report 25732742 (Version 1)
Quarter: 2025Q3

REPORT INFORMATION
  Report Type: Spontaneous
  Country: US (occurrence: US)
  Receive Date: 20250827
  Receipt Date: 20250827
  Transmission Date: 20251020
  Serious: No
  Sender: ROCHE
  Company Number: US-ROCHE-10000371047

PATIENT
  Age: 48 Year
  Sex: Female
  Weight: 56.69 kg

DRUGS (2)
  1. AVASTIN [Suspect]
     Active Substance: BEVACIZUMAB
     Indication: Ovarian cancer stage IV
     Route: 042
     Dates: start: 202308
  2. LYNPARZA [Concomitant]
     Active Substance: OLAPARIB
     Indication: Ovarian cancer stage IV
     Route: 048
     Dates: start: 202403

REACTIONS (2)
  - Brain fog [Unknown]
  - Protein urine present [Unknown]

NARRATIVE: CASE EVENT DATE: 20231001
